FAERS Safety Report 22012734 (Version 1)
Quarter: 2023Q1

REPORT INFORMATION
  Report Type: Spontaneous
  Country: FR (occurrence: FR)
  Receive Date: 20230220
  Receipt Date: 20230220
  Transmission Date: 20230418
  Serious: Yes (Hospitalization)
  Sender: FDA-Public Use
  Company Number: None

PATIENT
  Age: 64 Year
  Sex: Female

DRUGS (3)
  1. GEMCITABINE HYDROCHLORIDE [Suspect]
     Active Substance: GEMCITABINE HYDROCHLORIDE
     Indication: T-cell lymphoma
     Dosage: UNK UNK, UNKNOWN
     Route: 042
     Dates: start: 20220603, end: 20220919
  2. CYCLOPHOSPHAMIDE [Suspect]
     Active Substance: CYCLOPHOSPHAMIDE
     Indication: T-cell lymphoma
     Dosage: UNK UNK, UNKNOWN
     Route: 042
     Dates: start: 20220603, end: 20220919
  3. DOXORUBICIN [Suspect]
     Active Substance: DOXORUBICIN
     Indication: T-cell lymphoma
     Dosage: UNK UNK, UNKNOWN
     Route: 042
     Dates: start: 20220603, end: 20220919

REACTIONS (1)
  - Ejection fraction decreased [Not Recovered/Not Resolved]

NARRATIVE: CASE EVENT DATE: 20221226
